FAERS Safety Report 4557543-X (Version None)
Quarter: 2005Q1

REPORT INFORMATION
  Report Type: 
  Country: None (occurrence: None)
  Receive Date: 20050103
  Receipt Date: 20040831
  Transmission Date: 20050727
  Serious: Yes (Other)
  Sender: FDA-Public Use
  Company Number: 2004UW18360

PATIENT
  Age: 75 Year
  Sex: Female

DRUGS (5)
  1. CRESTOR [Suspect]
     Indication: BLOOD CHOLESTEROL INCREASED
     Dosage: 10 MG PO
     Route: 048
  2. ASPIRIN [Concomitant]
  3. MICARDIS [Concomitant]
  4. TOPROL-XL [Concomitant]
  5. PRILOSEC [Concomitant]

REACTIONS (1)
  - CHROMATURIA [None]
